FAERS Safety Report 4653807-X (Version None)
Quarter: 2005Q2

REPORT INFORMATION
  Report Type: 
  Country: None (occurrence: None)
  Receive Date: 20050505
  Receipt Date: 20050103
  Transmission Date: 20051028
  Serious: Yes (Death)
  Sender: FDA-Public Use
  Company Number: DE-SANOFI-SYNTHELABO-F04200500004

PATIENT
  Sex: Male
  Weight: 82 kg

DRUGS (9)
  1. ELOXATIN [Suspect]
     Indication: RECTAL CANCER
     Route: 041
     Dates: start: 20041209, end: 20041209
  2. CAPECITABIN [Suspect]
     Indication: RECTAL CANCER
     Route: 048
     Dates: start: 20041209, end: 20041223
  3. VOTUM [Concomitant]
     Indication: HYPERTENSION
     Route: 048
  4. VITAMIN B6 [Concomitant]
     Indication: CHEMOTHERAPY
     Route: 048
  5. ZOFRAN [Concomitant]
     Indication: PROPHYLAXIS OF NAUSEA AND VOMITING
     Route: 041
     Dates: start: 20041208, end: 20041208
  6. ZOFRAN [Concomitant]
     Route: 048
     Dates: start: 20041209, end: 20041211
  7. PARACETAMOL [Concomitant]
     Indication: CHEMOTHERAPY
     Route: 048
     Dates: start: 20041208, end: 20041208
  8. PARACETAMOL [Concomitant]
     Route: 048
     Dates: start: 20041209, end: 20041209
  9. MCP TROPFEN [Concomitant]
     Indication: PROPHYLAXIS OF NAUSEA AND VOMITING
     Route: 048

REACTIONS (1)
  - SUDDEN CARDIAC DEATH [None]
